FAERS Safety Report 18773207 (Version 1)
Quarter: 2021Q1

REPORT INFORMATION
  Report Type: Spontaneous
  Country: US (occurrence: US)
  Receive Date: 20210122
  Receipt Date: 20210122
  Transmission Date: 20210419
  Serious: Yes (Other)
  Sender: FDA-Public Use
  Company Number: None

PATIENT
  Age: 45 Year
  Sex: Male
  Weight: 110.25 kg

DRUGS (3)
  1. GLUTAMINE [Concomitant]
     Active Substance: GLUTAMINE
  2. FINASTERIDE. [Concomitant]
     Active Substance: FINASTERIDE
  3. TESTOSTERONE CYPIONATE. [Suspect]
     Active Substance: TESTOSTERONE CYPIONATE
     Indication: HORMONE REPLACEMENT THERAPY
     Dosage: ?          QUANTITY:200 INJECTION(S);OTHER FREQUENCY:.3 ML 3X WEEK;?
     Route: 030
     Dates: start: 20210119, end: 20210121

REACTIONS (3)
  - Product deposit [None]
  - Injection site pain [None]
  - Injection site swelling [None]

NARRATIVE: CASE EVENT DATE: 20210105
